FAERS Safety Report 14720963 (Version 3)
Quarter: 2018Q4

REPORT INFORMATION
  Report Type: Spontaneous
  Country: BR (occurrence: BR)
  Receive Date: 20180405
  Receipt Date: 20181115
  Transmission Date: 20190204
  Serious: Yes (Other)
  Sender: FDA-Public Use
  Company Number: BR-REGENERON PHARMACEUTICALS, INC.-2018-20142

PATIENT

DRUGS (3)
  1. CHLORHEXIDIN                       /00133001/ [Concomitant]
     Active Substance: CHLORHEXIDINE
     Indication: PRODUCT USED FOR UNKNOWN INDICATION
  2. EYLEA [Suspect]
     Active Substance: AFLIBERCEPT
     Indication: DIABETIC RETINAL OEDEMA
     Dosage: DOSE, FREQUENCY, TREATED EYE AND TOTAL NUMBER OF INJECTIONS RECEIVED NOT PROVIDED.
     Dates: start: 201803
  3. PREDNISONE. [Concomitant]
     Active Substance: PREDNISONE
     Indication: PRODUCT USED FOR UNKNOWN INDICATION
     Dosage: 60 MG, FOR 15 DAYS

REACTIONS (5)
  - Blindness transient [Unknown]
  - Vitritis [Unknown]
  - Hypopyon [Recovered/Resolved]
  - Anterior chamber disorder [Unknown]
  - Multiple use of single-use product [Unknown]

NARRATIVE: CASE EVENT DATE: 201803
